FAERS Safety Report 10184100 (Version 1)
Quarter: 2014Q2

REPORT INFORMATION
  Report Type: Spontaneous
  Country: US (occurrence: US)
  Receive Date: 20140520
  Receipt Date: 20140520
  Transmission Date: 20141212
  Serious: No
  Sender: FDA-Public Use
  Company Number: US-ASTRAZENECA-2014SE20796

PATIENT
  Sex: Female

DRUGS (1)
  1. BUDESONIDE [Suspect]
     Indication: COLITIS MICROSCOPIC
     Route: 048
     Dates: start: 20140320

REACTIONS (5)
  - Feeling abnormal [Unknown]
  - Laceration [Unknown]
  - Memory impairment [Unknown]
  - Fall [Unknown]
  - Off label use [Unknown]
